FAERS Safety Report 5897493-X (Version None)
Quarter: 2008Q3

REPORT INFORMATION
  Report Type: 
  Country: None (occurrence: None)
  Receive Date: 20080925
  Receipt Date: 20080916
  Transmission Date: 20090109
  Serious: Yes (Other)
  Sender: FDA-Public Use
  Company Number: IE-BRISTOL-MYERS SQUIBB COMPANY-14346217

PATIENT
  Sex: Female

DRUGS (3)
  1. IFOSFAMIDE [Suspect]
     Indication: CHEMOTHERAPY
     Dosage: 2500 MG/M2 OVER 3 CONSECUTIVE DAYS
     Route: 065
  2. ETOPOSIDE [Suspect]
     Indication: CHEMOTHERAPY
     Route: 065
  3. EPIRUBICIN [Suspect]
     Indication: CHEMOTHERAPY
     Route: 065

REACTIONS (1)
  - MUCOSAL INFLAMMATION [None]
